FAERS Safety Report 5203395-4 (Version None)
Quarter: 2007Q1

REPORT INFORMATION
  Report Type: 
  Country: None (occurrence: None)
  Receive Date: 20070105
  Receipt Date: 20061222
  Transmission Date: 20070707
  Serious: Yes (Life-Threatening, Hospitalization)
  Sender: FDA-Public Use
  Company Number: 2006002294

PATIENT
  Age: 53 Year
  Sex: Female

DRUGS (5)
  1. TARCEVA [Suspect]
     Indication: LUNG NEOPLASM MALIGNANT
     Dosage: 150 MG (QD), ORAL
     Route: 048
     Dates: start: 20061108, end: 20061113
  2. GARDENALE (PHENOBARBITAL SODIUM) (TABLET) [Suspect]
     Indication: METASTASES TO CENTRAL NERVOUS SYSTEM
     Dosage: 100 MG (QD), ORAL
     Route: 048
     Dates: start: 20061016, end: 20061113
  3. NEXIUM [Concomitant]
  4. BENTELAN (BETAMETHASONE SODIUM PHOSPHATE) [Concomitant]
  5. TORADOL [Concomitant]

REACTIONS (1)
  - TOXIC EPIDERMAL NECROLYSIS [None]
